FAERS Safety Report 18739305 (Version 1)
Quarter: 2021Q1

REPORT INFORMATION
  Report Type: Spontaneous
  Country: US (occurrence: US)
  Receive Date: 20210113
  Receipt Date: 20210113
  Transmission Date: 20210419
  Serious: Yes (Other)
  Sender: FDA-Public Use
  Company Number: None

PATIENT
  Age: 66 Year
  Sex: Male
  Weight: 111.58 kg

DRUGS (1)
  1. BAMLANIVIMAB. [Suspect]
     Active Substance: BAMLANIVIMAB

REACTIONS (5)
  - Fatigue [None]
  - Headache [None]
  - Gait disturbance [None]
  - Pyrexia [None]
  - Facial paralysis [None]

NARRATIVE: CASE EVENT DATE: 20201217
